FAERS Safety Report 8494176 (Version 3)
Quarter: 2013Q2

REPORT INFORMATION
  Report Type: Spontaneous
  Country: US (occurrence: US)
  Receive Date: 20120404
  Receipt Date: 20130402
  Transmission Date: 20140414
  Serious: Yes (Other)
  Sender: FDA-Public Use
  Company Number: US-GLAXOSMITHKLINE-A0972204A

PATIENT
  Sex: Female

DRUGS (1)
  1. PROMACTA [Suspect]
     Indication: PRODUCT USED FOR UNKNOWN INDICATION
     Dosage: 25MG UNKNOWN
     Route: 065
     Dates: start: 20110503, end: 201202

REACTIONS (3)
  - Platelet disorder [Unknown]
  - Treatment noncompliance [Unknown]
  - Laboratory test abnormal [Unknown]
